FAERS Safety Report 21906376 (Version 3)
Quarter: 2023Q1

REPORT INFORMATION
  Report Type: Spontaneous
  Country: US (occurrence: US)
  Receive Date: 20230125
  Receipt Date: 20230228
  Transmission Date: 20230418
  Serious: No
  Sender: FDA-Public Use
  Company Number: US-PFIZER INC-202300016565

PATIENT
  Age: 48 Year
  Sex: Female

DRUGS (2)
  1. DEPO-PROVERA [Suspect]
     Active Substance: MEDROXYPROGESTERONE ACETATE
     Indication: Contraception
     Dosage: 0.65 ML, EVERY 3 MONTHS (EVERY 12-13 WEEKS)
     Route: 058
     Dates: start: 202205
  2. SERTRALINE [Concomitant]
     Active Substance: SERTRALINE HYDROCHLORIDE
     Dosage: 50 MG, 1X/DAY (50MG ONCE DAILY)

REACTIONS (2)
  - Drug dose omission by device [Unknown]
  - Device malfunction [Unknown]
